FAERS Safety Report 17587130 (Version 2)
Quarter: 2020Q2

REPORT INFORMATION
  Report Type: Spontaneous
  Country: DE (occurrence: DE)
  Receive Date: 20200326
  Receipt Date: 20200402
  Transmission Date: 20200713
  Serious: Yes (Hospitalization)
  Sender: FDA-Public Use
  Company Number: DE-MYLANLABS-2020M1031771

PATIENT
  Age: 85 Year
  Sex: Female

DRUGS (10)
  1. CLOPIDOGREL [Suspect]
     Active Substance: CLOPIDOGREL BISULFATE
     Indication: PRODUCT USED FOR UNKNOWN INDICATION
     Dosage: 75 ML, 1-0-0-0
  2. ACETYLSALICYLIC ACID [Suspect]
     Active Substance: ASPIRIN
     Indication: PRODUCT USED FOR UNKNOWN INDICATION
     Dosage: 100 MG, 0-1-0-0
  3. TARGIN [Concomitant]
     Active Substance: NALOXONE HYDROCHLORIDE\OXYCODONE HYDROCHLORIDE
     Dosage: 2.5|5 MG, 1-1-1-0
  4. CANDESARTAN. [Concomitant]
     Active Substance: CANDESARTAN
     Dosage: 16 MG, 0.5-0-0-0
  5. LERCANIDIPINE [Concomitant]
     Active Substance: LERCANIDIPINE
     Dosage: 10 MG, 1-0-0.5-0
  6. LEVOTHYROXINE SODIUM. [Concomitant]
     Active Substance: LEVOTHYROXINE SODIUM
     Dosage: 75 ?G, 1-0-0-0
  7. PANTOPRAZOL                        /01263201/ [Concomitant]
     Active Substance: PANTOPRAZOLE
     Dosage: 20 MG, 1-0-0-0
  8. DEKRISTOL [Concomitant]
     Active Substance: CHOLECALCIFEROL
     Dosage: 20.000 IE / WOCHE, 1X
  9. METAMIZOL                          /06276701/ [Concomitant]
     Active Substance: METAMIZOLE
     Dosage: 500 MG, 1-1-1-1
  10. SIMVABETA [Concomitant]
     Active Substance: SIMVASTATIN
     Dosage: 30 MG, 0-0-1-0

REACTIONS (6)
  - Haematochezia [Unknown]
  - Gastrooesophageal reflux disease [Unknown]
  - Pallor [Unknown]
  - Anaemia [Unknown]
  - Constipation [Unknown]
  - General physical health deterioration [Unknown]
